FAERS Safety Report 4664602-X (Version None)
Quarter: 2005Q2

REPORT INFORMATION
  Report Type: 
  Country: None (occurrence: None)
  Receive Date: 20050518
  Receipt Date: 20050415
  Transmission Date: 20051028
  Serious: Yes (Other)
  Sender: FDA-Public Use
  Company Number: CN-GLAXOSMITHKLINE-B0381167A

PATIENT

DRUGS (1)
  1. ZENTEL [Suspect]
     Route: 065

REACTIONS (1)
  - URTICARIA [None]
